FAERS Safety Report 6568220-8 (Version None)
Quarter: 2010Q1

REPORT INFORMATION
  Report Type: 
  Country: None (occurrence: None)
  Receive Date: 20100203
  Receipt Date: 20100128
  Transmission Date: 20100710
  Serious: Yes (Hospitalization)
  Sender: FDA-Public Use
  Company Number: FR-ROCHE-682483

PATIENT
  Sex: Female

DRUGS (3)
  1. TAMIFLU [Suspect]
     Route: 048
     Dates: start: 20091212, end: 20091213
  2. DIPROSONE [Suspect]
     Indication: PSORIASIS
     Route: 003
  3. DIANE 35 [Concomitant]

REACTIONS (2)
  - NEUTROPENIA [None]
  - PANCREATITIS [None]
